FAERS Safety Report 14572667 (Version 2)
Quarter: 2018Q2

REPORT INFORMATION
  Report Type: Spontaneous
  Country: US (occurrence: US)
  Receive Date: 20180226
  Receipt Date: 20180410
  Transmission Date: 20180711
  Serious: Yes (Other)
  Sender: FDA-Public Use
  Company Number: US-JUBILANT CADISTA PHARMACEUTICALS-2018JUB00041

PATIENT
  Age: 47 Year
  Sex: Male
  Weight: 81.63 kg

DRUGS (4)
  1. METHYLPREDNISOLONE. [Suspect]
     Active Substance: METHYLPREDNISOLONE
     Dosage: UNK
     Dates: start: 20170128
  2. PERCOCET [Concomitant]
     Active Substance: ACETAMINOPHEN\OXYCODONE HYDROCHLORIDE
  3. METHYLPREDNISOLONE. [Suspect]
     Active Substance: METHYLPREDNISOLONE
     Indication: BACK DISORDER
     Dosage: UNK, AS DIRECTED ON PACK TAPERING
     Route: 048
     Dates: start: 201712
  4. MEDROL DOSE PACK [Concomitant]
     Active Substance: METHYLPREDNISOLONE
     Indication: LUMBAR RADICULOPATHY

REACTIONS (2)
  - Pain in extremity [Recovering/Resolving]
  - Tendon injury [Recovering/Resolving]

NARRATIVE: CASE EVENT DATE: 20170102
